APPROVED DRUG PRODUCT: VEOZAH
Active Ingredient: FEZOLINETANT
Strength: 45MG
Dosage Form/Route: TABLET;ORAL
Application: N216578 | Product #001
Applicant: ASTELLAS PHARMA US INC
Approved: May 12, 2023 | RLD: Yes | RS: Yes | Type: RX

PATENTS:
Patent 10836768 | Expires: Mar 28, 2034
Patent 9987274 | Expires: Mar 28, 2034
Patent 9422299 | Expires: Mar 28, 2034
Patent 8871761 | Expires: Apr 4, 2031

EXCLUSIVITY:
Code: NCE | Date: May 12, 2028